FAERS Safety Report 16848074 (Version 2)
Quarter: 2019Q4

REPORT INFORMATION
  Report Type: Report from Study
  Country: None (occurrence: US)
  Receive Date: 20190925
  Receipt Date: 20191010
  Transmission Date: 20200122
  Serious: Yes (Other)
  Sender: FDA-Public Use
  Company Number: US-ABBVIE-19K-163-2933438-00

PATIENT
  Age: 16 Year
  Sex: Female

DRUGS (2)
  1. HUMIRA [Suspect]
     Active Substance: ADALIMUMAB
     Indication: JUVENILE IDIOPATHIC ARTHRITIS
     Dosage: CITRATE FREE
     Route: 058
     Dates: start: 20190911, end: 2019
  2. HUMIRA [Suspect]
     Active Substance: ADALIMUMAB
     Indication: JUVENILE IDIOPATHIC ARTHRITIS
     Route: 058
     Dates: start: 20190902, end: 201909

REACTIONS (13)
  - Tearfulness [Unknown]
  - Mood swings [Recovering/Resolving]
  - Depressed mood [Unknown]
  - Emotional disorder [Not Recovered/Not Resolved]
  - Negative thoughts [Recovering/Resolving]
  - Fatigue [Not Recovered/Not Resolved]
  - Disturbance in attention [Not Recovered/Not Resolved]
  - Arthralgia [Not Recovered/Not Resolved]
  - Depression suicidal [Recovering/Resolving]
  - Dizziness [Not Recovered/Not Resolved]
  - Mood altered [Not Recovered/Not Resolved]
  - Intentional self-injury [Unknown]
  - Discomfort [Unknown]

NARRATIVE: CASE EVENT DATE: 201909
